FAERS Safety Report 17983204 (Version 2)
Quarter: 2020Q3

REPORT INFORMATION
  Report Type: Spontaneous
  Country: US (occurrence: US)
  Receive Date: 20200706
  Receipt Date: 20200709
  Transmission Date: 20201103
  Serious: No
  Sender: FDA-Public Use
  Company Number: US-TORRENT-00010292

PATIENT
  Sex: Female

DRUGS (2)
  1. MONTELUKAST SODIUM IR TABLETS [Concomitant]
     Active Substance: MONTELUKAST SODIUM
     Indication: HYPERSENSITIVITY
     Dosage: SINCE YEAR AND HALF OR 2 YEARS, ONE TABLET DAILY AT NIGHT
     Route: 048
  2. MONTELUKAST SODIUM IR TABLETS [Suspect]
     Active Substance: MONTELUKAST SODIUM
     Indication: HYPERSENSITIVITY
     Dosage: ONE TABLET DAILY AT NIGHT
     Route: 048
     Dates: start: 202005

REACTIONS (3)
  - Product container issue [Unknown]
  - Poor quality product administered [Unknown]
  - No adverse event [Unknown]

NARRATIVE: CASE EVENT DATE: 2020
